FAERS Safety Report 14676382 (Version 2)
Quarter: 2018Q3

REPORT INFORMATION
  Report Type: Spontaneous
  Country: CZ (occurrence: CZ)
  Receive Date: 20180323
  Receipt Date: 20180719
  Transmission Date: 20181010
  Serious: Yes (Hospitalization, Other)
  Sender: FDA-Public Use
  Company Number: CZ-BRISTOL-MYERS SQUIBB COMPANY-BMS-2018-025195

PATIENT
  Sex: Female

DRUGS (1)
  1. NIVOLUMAB [Suspect]
     Active Substance: NIVOLUMAB
     Indication: RENAL CANCER
     Dosage: LAST DOSE WAS ON 2018
     Route: 065
     Dates: start: 201712

REACTIONS (5)
  - Diplopia [Unknown]
  - Hypothyroidism [Unknown]
  - Cranial nerve disorder [Unknown]
  - Pulmonary embolism [Unknown]
  - Visual field defect [Unknown]

NARRATIVE: CASE EVENT DATE: 20180117
